FAERS Safety Report 8135594 (Version 2)
Quarter: 2012Q4

REPORT INFORMATION
  Report Type: Report from Study
  Country: DE (occurrence: DE)
  Receive Date: 20110914
  Receipt Date: 20120912
  Transmission Date: 20130627
  Serious: Yes (Death, Other)
  Sender: FDA-Public Use
  Company Number: DE-ROCHE-802146

PATIENT
  Age: 50 Year
  Sex: Male

DRUGS (9)
  1. GEMCITABINE HYDROCHLORIDE [Suspect]
     Indication: NON-SMALL CELL LUNG CANCER
     Route: 042
     Dates: start: 20110817, end: 20110817
  2. CISPLATIN [Suspect]
     Indication: NON-SMALL CELL LUNG CANCER
     Route: 042
     Dates: start: 20110817, end: 20110817
  3. AVASTIN [Suspect]
     Indication: NON-SMALL CELL LUNG CANCER
     Route: 042
     Dates: start: 20110817, end: 20110817
  4. DELIX 5 [Concomitant]
     Indication: HYPERTENSION
     Route: 048
     Dates: start: 20110823, end: 20110825
  5. NORVASC [Concomitant]
     Indication: HYPERTENSION
     Route: 048
     Dates: start: 20110822, end: 20110822
  6. CARBIMAZOL [Concomitant]
     Indication: HYPERTHYROIDISM
     Route: 048
     Dates: start: 20110823, end: 20110825
  7. CIPRALEX [Concomitant]
     Indication: ANXIETY
     Route: 065
     Dates: start: 20110823, end: 20110825
  8. IRENAT [Concomitant]
     Route: 048
     Dates: start: 20110823, end: 20110824
  9. CATAPRESAN [Concomitant]
     Indication: HYPERTENSION
     Route: 058
     Dates: start: 20110823, end: 20110824

REACTIONS (6)
  - Neoplasm progression [Fatal]
  - Hyponatraemia [Not Recovered/Not Resolved]
  - Dyspnoea [Not Recovered/Not Resolved]
  - Pain [Not Recovered/Not Resolved]
  - Pneumonia [Unknown]
  - Nausea [Unknown]
